FAERS Safety Report 8881904 (Version 1)
Quarter: 2012Q4

REPORT INFORMATION
  Report Type: 
  Country: US (occurrence: US)
  Receive Date: 20121102
  Receipt Date: 20121102
  Transmission Date: 20130627
  Serious: Yes (Other)
  Sender: FDA-Public Use
  Company Number: CHPA2012US022591

PATIENT
  Age: 74 Year
  Sex: Female

DRUGS (2)
  1. MYOFLEX ANALGESIC CREME [Suspect]
     Indication: ARTHRALGIA
     Dosage: UNK, PRN
     Route: 061
  2. DRUG THERAPY NOS [Concomitant]
     Indication: BLOOD PRESSURE MANAGEMENT
     Dosage: UNK, UNK

REACTIONS (2)
  - Allergy to animal [Not Recovered/Not Resolved]
  - Hypersensitivity [Not Recovered/Not Resolved]
